FAERS Safety Report 5930170-5 (Version None)
Quarter: 2008Q4

REPORT INFORMATION
  Report Type: 
  Country: None (occurrence: None)
  Receive Date: 20081024
  Receipt Date: 20081014
  Transmission Date: 20090506
  Serious: Yes (Hospitalization)
  Sender: FDA-Public Use
  Company Number: IE-PFIZER INC-2008087011

PATIENT
  Age: 65 Year
  Sex: Male

DRUGS (2)
  1. ZYVOX [Suspect]
  2. ANTIBIOTICS [Concomitant]

REACTIONS (2)
  - ABDOMINAL OPERATION [None]
  - PATHOGEN RESISTANCE [None]
